FAERS Safety Report 9932752 (Version 1)
Quarter: 2014Q1

REPORT INFORMATION
  Report Type: Spontaneous
  Country: US (occurrence: US)
  Receive Date: 20140228
  Receipt Date: 20140228
  Transmission Date: 20141002
  Serious: No
  Sender: FDA-Public Use
  Company Number: US-GLAXOSMITHKLINE-A1036841A

PATIENT
  Age: 39 Year
  Sex: Female
  Weight: 86.4 kg

DRUGS (18)
  1. IMITREX [Suspect]
     Indication: MIGRAINE
     Route: 065
  2. RELPAX [Suspect]
     Indication: MIGRAINE
     Dosage: 40MG AS REQUIRED
     Route: 065
  3. DILTIAZEM [Concomitant]
     Dosage: 120MG PER DAY
  4. PROPAFENONE [Concomitant]
  5. RECLAST [Concomitant]
  6. WARFARIN [Concomitant]
     Dosage: 5MG PER DAY
  7. METHADONE [Concomitant]
     Dosage: 10MG THREE TIMES PER DAY
  8. LISINOPRIL [Concomitant]
     Dosage: 20MG PER DAY
  9. ALPRAZOLAM [Concomitant]
  10. TRAZODONE [Concomitant]
     Dosage: 100MG PER DAY
  11. VENLAFAXINE HYDROCHLORIDE [Concomitant]
     Dosage: 75MG PER DAY
  12. IBUPROFEN [Concomitant]
     Dosage: 600MG FOUR TIMES PER DAY
  13. FOLIC ACID [Concomitant]
  14. VITAMIN B12 [Concomitant]
  15. VITAMIN B6 [Concomitant]
  16. PROMETHAZINE [Concomitant]
  17. CALCIUM [Concomitant]
  18. MAGNESIUM [Concomitant]

REACTIONS (2)
  - Nerve injury [Unknown]
  - Hypertension [Unknown]
